FAERS Safety Report 21732267 (Version 1)
Quarter: 2022Q4

REPORT INFORMATION
  Report Type: Spontaneous
  Country: JP (occurrence: None)
  Receive Date: 20221215
  Receipt Date: 20221215
  Transmission Date: 20230113
  Serious: Yes (Hospitalization, Other)
  Sender: FDA-Public Use
  Company Number: JP-Orion Corporation ORION PHARMA-ENTC2022-0247

PATIENT
  Sex: Female

DRUGS (3)
  1. STALEVO [Suspect]
     Active Substance: CARBIDOPA\ENTACAPONE\LEVODOPA
     Indication: Parkinson^s disease
     Dosage: STRENGTH: LEVODOPA-UNKNOWN, CARBIDOPA-UNKNOWN, ENTACAPONE-100 MG?AT 8:00, 11:00, 15:00
     Route: 048
     Dates: end: 2022
  2. STALEVO [Suspect]
     Active Substance: CARBIDOPA\ENTACAPONE\LEVODOPA
     Dosage: STRENGTH: LEVODOPA-UNKNOWN, CARBIDOPA-UNKNOWN, ENTACAPONE-100 MG?ADMINISTERED AT INTERVALS OF ABOUT
     Route: 048
     Dates: start: 202206, end: 20220920
  3. STALEVO [Suspect]
     Active Substance: CARBIDOPA\ENTACAPONE\LEVODOPA
     Dosage: STRENGTH: LEVODOPA-UNKNOWN, CARBIDOPA-UNKNOWN, ENTACAPONE-100 MG?AFTER BREAKFAST AND DINNER
     Route: 048
     Dates: start: 20221126

REACTIONS (14)
  - Dementia with Lewy bodies [Unknown]
  - Cerebral infarction [Unknown]
  - Facial bones fracture [Unknown]
  - Fall [Unknown]
  - Subarachnoid haemorrhage [Unknown]
  - Tooth fracture [Unknown]
  - Muscle spasms [Unknown]
  - Productive cough [Unknown]
  - Salivary hypersecretion [Unknown]
  - Dysphagia [Unknown]
  - Flushing [Unknown]
  - Pyrexia [Unknown]
  - On and off phenomenon [Unknown]
  - Visual impairment [Unknown]

NARRATIVE: CASE EVENT DATE: 20220501
